FAERS Safety Report 23825975 (Version 1)
Quarter: 2024Q2

REPORT INFORMATION
  Report Type: Spontaneous
  Country: US (occurrence: None)
  Receive Date: 20240506
  Receipt Date: 20240506
  Transmission Date: 20240715
  Serious: Yes (Hospitalization)
  Sender: FDA-Public Use
  Company Number: None

PATIENT
  Age: 44 Year
  Sex: Male

DRUGS (1)
  1. BUPROPION HYDROCHLORIDE [Suspect]
     Active Substance: BUPROPION HYDROCHLORIDE
     Dosage: OTHER FREQUENCY : AM;?
     Route: 048
     Dates: start: 20220402, end: 20220708

REACTIONS (1)
  - Seizure [None]

NARRATIVE: CASE EVENT DATE: 20220709
